FAERS Safety Report 23862654 (Version 1)
Quarter: 2024Q2

REPORT INFORMATION
  Report Type: Spontaneous
  Country: US (occurrence: None)
  Receive Date: 20240515
  Receipt Date: 20240515
  Transmission Date: 20240716
  Serious: Yes (Disabling)
  Sender: FDA-Public Use
  Company Number: None

PATIENT
  Age: 38 Year
  Sex: Female
  Weight: 45 kg

DRUGS (1)
  1. PRILOSEC [Suspect]
     Active Substance: OMEPRAZOLE MAGNESIUM
     Indication: Gastrooesophageal reflux disease
     Dosage: OTHER QUANTITY : 1 TABLET(S);?FREQUENCY : DAILY;?
     Route: 048
     Dates: start: 20201018, end: 20201028

REACTIONS (7)
  - Dyspepsia [None]
  - Decreased appetite [None]
  - Weight decreased [None]
  - Hypophagia [None]
  - Stress fracture [None]
  - Foot fracture [None]
  - Therapy cessation [None]

NARRATIVE: CASE EVENT DATE: 20211024
